FAERS Safety Report 5668969-5 (Version None)
Quarter: 2008Q1

REPORT INFORMATION
  Report Type: 
  Country: None (occurrence: None)
  Receive Date: 20080226
  Receipt Date: 20070308
  Transmission Date: 20080703
  Serious: No
  Sender: FDA-Public Use
  Company Number: 486230

PATIENT
  Age: 19 Year
  Sex: Female
  Weight: 79.4 kg

DRUGS (1)
  1. ACCUTANE [Suspect]
     Indication: ACNE CYSTIC
     Dosage: ORAL
     Route: 048
     Dates: start: 20060703, end: 20061202

REACTIONS (2)
  - DEPRESSION [None]
  - STRESS [None]
